FAERS Safety Report 4832682-4 (Version None)
Quarter: 2005Q4

REPORT INFORMATION
  Report Type: 
  Country: None (occurrence: None)
  Receive Date: 20051121
  Receipt Date: 20051107
  Transmission Date: 20060501
  Serious: Yes (Hospitalization)
  Sender: FDA-Public Use
  Company Number: 2005AP05751

PATIENT
  Age: 60 Year
  Sex: Male

DRUGS (2)
  1. CASODEX [Suspect]
     Indication: PROSTATE CANCER
     Route: 048
     Dates: start: 20051001, end: 20051001
  2. ALCOHOL [Interacting]

REACTIONS (3)
  - ALCOHOL INTERACTION [None]
  - HYPERHIDROSIS [None]
  - SYNCOPE [None]
